FAERS Safety Report 6027457-7 (Version None)
Quarter: 2008Q4

REPORT INFORMATION
  Report Type: 
  Country: None (occurrence: None)
  Receive Date: 20081222
  Receipt Date: 20080915
  Transmission Date: 20090506
  Serious: No
  Sender: FDA-Public Use
  Company Number: US-WYE-H06013208

PATIENT
  Age: 56 Year
  Sex: Female

DRUGS (3)
  1. PRISTIQ [Suspect]
     Indication: DEPRESSION
     Dates: start: 20080910
  2. ZOLOFT [Suspect]
     Indication: DEPRESSION
     Dosage: ^TAPERING AND DISCONTINUING^
     Dates: end: 20080901
  3. PREMARIN [Concomitant]

REACTIONS (1)
  - FEELING JITTERY [None]
